FAERS Safety Report 7227126-1 (Version None)
Quarter: 2011Q1

REPORT INFORMATION
  Report Type: 
  Country: None (occurrence: None)
  Receive Date: 20110114
  Receipt Date: 20110106
  Transmission Date: 20110831
  Serious: Yes (Other)
  Sender: FDA-Public Use
  Company Number: US-PFIZER INC-2011003984

PATIENT
  Sex: Female
  Weight: 63.492 kg

DRUGS (2)
  1. EFFEXOR XR [Suspect]
     Dosage: OPENING UP CAPSULES AND TAKING LOWER DOSE
     Route: 048
     Dates: start: 20101201
  2. EFFEXOR XR [Suspect]
     Indication: MAJOR DEPRESSION
     Dosage: 75 MG, 1X/DAY
     Route: 048
     Dates: end: 20101201

REACTIONS (5)
  - INSOMNIA [None]
  - ANXIETY [None]
  - PARAESTHESIA [None]
  - DRUG WITHDRAWAL SYNDROME [None]
  - HEART RATE INCREASED [None]
